FAERS Safety Report 5136949-4 (Version None)
Quarter: 2006Q4

REPORT INFORMATION
  Report Type: 
  Country: None (occurrence: None)
  Receive Date: 20061023
  Receipt Date: 20061009
  Transmission Date: 20070319
  Serious: Yes (Hospitalization)
  Sender: FDA-Public Use
  Company Number: 2006092163

PATIENT
  Age: 24 Year
  Sex: Male
  Weight: 20 kg

DRUGS (16)
  1. HYDROXYZINE HCL [Suspect]
     Dosage: ORAL
     Route: 048
     Dates: start: 20060509, end: 20060515
  2. CARBOPLATIN [Suspect]
     Indication: NEUROBLASTOMA
     Dosage: INTRAVENOUS
     Route: 042
     Dates: start: 20060517, end: 20060517
  3. ETOPOSIDE [Suspect]
     Indication: NEUROBLASTOMA
     Dosage: 130 MG, INTRAVENOUS
     Route: 042
     Dates: start: 20060517, end: 20060518
  4. VINCRISTINE SULFATE [Suspect]
     Indication: NEUROBLASTOMA
     Dosage: INTRAVENOUS
     Route: 042
     Dates: start: 20060517, end: 20060517
  5. METOPIMAZINE (METOPIMAZINE) [Suspect]
     Dosage: INTRAVENOUS
     Route: 042
     Dates: start: 20060517, end: 20060522
  6. LENOGRASTIM (LENOGRASTIM) [Suspect]
     Dates: start: 20060520, end: 20060522
  7. ACETAMINOPHEN [Suspect]
     Dosage: 1200 MG, INTRAVENOUS
     Route: 042
     Dates: start: 20060507, end: 20060522
  8. BACTRIM [Suspect]
     Dosage: ORAL
     Route: 048
     Dates: start: 20060517
  9. LUGOL (IODINE, POTASSIUM IODIDE) [Suspect]
     Dosage: ORAL
     Route: 048
     Dates: start: 20060509, end: 20060518
  10. CODEINE SUL TAB [Suspect]
     Dosage: ORAL
     Route: 048
     Dates: start: 20060507, end: 20060520
  11. NALBUPHINE HCL [Suspect]
     Dates: start: 20060522
  12. ONDANSETRON HYDROCHLORIDE [Suspect]
     Dosage: INTRAVENOUS
     Route: 042
     Dates: start: 20060517, end: 20060519
  13. IBUPROFEN [Suspect]
     Dosage: ORAL
     Route: 048
     Dates: start: 20060504, end: 20060505
  14. VANCOMYCIN [Suspect]
     Dosage: INTRAVENOUS
     Route: 042
     Dates: start: 20060530
  15. TARGOCID [Suspect]
     Dates: start: 20060527, end: 20060529
  16. CEFTAZIDIME PENTAHYDRATE [Suspect]
     Dates: start: 20060526

REACTIONS (10)
  - ALANINE AMINOTRANSFERASE INCREASED [None]
  - ASPARTATE AMINOTRANSFERASE INCREASED [None]
  - AZOTAEMIA [None]
  - BLOOD ALKALINE PHOSPHATASE INCREASED [None]
  - BLOOD CREATININE INCREASED [None]
  - GAMMA-GLUTAMYLTRANSFERASE INCREASED [None]
  - HYPOKALAEMIA [None]
  - RENAL FAILURE ACUTE [None]
  - RENAL TUBULAR NECROSIS [None]
  - TRANSAMINASES INCREASED [None]
